FAERS Safety Report 9093290 (Version 2)
Quarter: 2013Q1

REPORT INFORMATION
  Report Type: Report from Study
  Country: US (occurrence: US)
  Receive Date: 20130201
  Receipt Date: 20130221
  Transmission Date: 20140127
  Serious: Yes (Other)
  Sender: FDA-Public Use
  Company Number: US-ROCHE-1183390

PATIENT
  Sex: 0

DRUGS (5)
  1. RITUXIMAB [Suspect]
     Indication: LYMPHOMA AIDS RELATED
     Route: 042
  2. LIPOSOMAL DOXORUBICIN [Suspect]
     Indication: LYMPHOMA AIDS RELATED
     Dosage: ON DAY 1
     Route: 042
  3. CYCLOPHOSPHAMIDE [Suspect]
     Indication: LYMPHOMA AIDS RELATED
     Route: 042
  4. VINCRISTINE [Suspect]
     Indication: LYMPHOMA AIDS RELATED
     Route: 042
  5. PREDNISONE [Suspect]
     Indication: LYMPHOMA AIDS RELATED
     Dosage: ON DAYS 1 THROUGH 5, REPEATED EVERY 21 TO 28 DAYS WITH CONCOMITANT ANTIRETROVIRAL THERAPY
     Route: 048

REACTIONS (14)
  - Dyspnoea [Unknown]
  - Pneumonitis [Unknown]
  - Neutropenia [Unknown]
  - Thrombocytopenia [Unknown]
  - Device related infection [Unknown]
  - Palmar-plantar erythrodysaesthesia syndrome [Unknown]
  - Fatigue [Unknown]
  - Decreased appetite [Unknown]
  - Peripheral motor neuropathy [Unknown]
  - Abdominal infection [Unknown]
  - Lung infection [Unknown]
  - Skin infection [Unknown]
  - Enteritis infectious [Unknown]
  - Urinary tract infection [Unknown]
